FAERS Safety Report 14621891 (Version 2)
Quarter: 2021Q3

REPORT INFORMATION
  Report Type: Spontaneous
  Country: CZ (occurrence: CZ)
  Receive Date: 20180310
  Receipt Date: 20210719
  Transmission Date: 20211014
  Serious: Yes (Death, Life-Threatening, Hospitalization, Other)
  Sender: FDA-Public Use
  Company Number: CZ-AUROBINDO-AUR-APL-2018-013088

PATIENT
  Age: 59 Year
  Sex: Male

DRUGS (12)
  1. METRONIDAZOLE. [Suspect]
     Active Substance: METRONIDAZOLE
     Indication: PRODUCT USED FOR UNKNOWN INDICATION
     Dosage: ()
     Route: 065
  2. KETOCONAZOLE. [Suspect]
     Active Substance: KETOCONAZOLE
     Indication: ANTIBIOTIC THERAPY
     Dosage: 400 MILLIGRAM, DAILY
     Route: 048
     Dates: start: 200705, end: 20070530
  3. CLARITHROMYCIN. [Suspect]
     Active Substance: CLARITHROMYCIN
     Indication: ANTIBIOTIC THERAPY
     Dosage: ()
     Route: 065
  4. OMEPRAZOLE. [Suspect]
     Active Substance: OMEPRAZOLE
     Indication: DUODENAL ULCER
     Dosage: UNK
     Route: 065
  5. KETOCONAZOLE. [Suspect]
     Active Substance: KETOCONAZOLE
     Indication: ANTIFUNGAL TREATMENT
  6. PRIMIDONE. [Concomitant]
     Active Substance: PRIMIDONE
     Indication: EPILEPSY
     Route: 065
  7. PENICILLINE [Suspect]
     Active Substance: PENICILLIN G
     Indication: ANTI-INFECTIVE THERAPY
     Dosage: UNK
     Route: 065
  8. FLUCONAZOLE. [Suspect]
     Active Substance: FLUCONAZOLE
     Indication: ANTI-INFECTIVE THERAPY
     Dosage: LATER THE DOSAGE WAS INCREASED TO 800 MG I.V./DAY.
     Route: 065
  9. CIPROFLOXACIN. [Suspect]
     Active Substance: CIPROFLOXACIN
     Indication: ANTIBIOTIC THERAPY
     Dosage: UNK
     Route: 065
  10. PHENYTOIN. [Concomitant]
     Active Substance: PHENYTOIN
     Indication: EPILEPSY
     Route: 065
  11. ACICLOVIR [Suspect]
     Active Substance: ACYCLOVIR
     Indication: ANTI-INFECTIVE THERAPY
     Dosage: ()
     Route: 065
  12. METHYLPREDNISOLONE. [Suspect]
     Active Substance: METHYLPREDNISOLONE
     Indication: CHRONIC OBSTRUCTIVE PULMONARY DISEASE
     Dosage: 16?20 MG/DAY
     Route: 048
     Dates: start: 2006

REACTIONS (27)
  - Encephalitis [Fatal]
  - Peritonitis [Fatal]
  - Herpes virus infection [Fatal]
  - Renal failure [Fatal]
  - C-reactive protein increased [Unknown]
  - Pseudomonas infection [Fatal]
  - Meningitis aseptic [Fatal]
  - Pleocytosis [Fatal]
  - Anaemia [Unknown]
  - Coagulopathy [Unknown]
  - Pneumothorax [Fatal]
  - Drug interaction [Fatal]
  - Condition aggravated [Not Recovered/Not Resolved]
  - Leukopenia [Unknown]
  - Psychomotor retardation [Not Recovered/Not Resolved]
  - Multiple organ dysfunction syndrome [Fatal]
  - Colitis [Fatal]
  - Nosocomial infection [Fatal]
  - Clostridium test positive [Fatal]
  - Polyarteritis nodosa [Fatal]
  - Cryptococcosis [Fatal]
  - Loss of consciousness [Unknown]
  - Generalised tonic-clonic seizure [Unknown]
  - Acute respiratory distress syndrome [Fatal]
  - Septic shock [Fatal]
  - Pulmonary haemorrhage [Fatal]
  - Weight decreased [Not Recovered/Not Resolved]
